FAERS Safety Report 22350675 (Version 1)
Quarter: 2023Q2

REPORT INFORMATION
  Report Type: Spontaneous
  Country: US (occurrence: US)
  Receive Date: 20230522
  Receipt Date: 20230522
  Transmission Date: 20230721
  Serious: Yes (Other)
  Sender: FDA-Public Use
  Company Number: US-MYLANLABS-2023M1052446

PATIENT
  Age: 15 Year
  Sex: Female

DRUGS (4)
  1. CISPLATIN [Suspect]
     Active Substance: CISPLATIN
     Indication: Renal cell carcinoma
     Dosage: 70 MILLIGRAM/SQ. METER (THE PATIENT RECEIVED CISPLATIN 70MG/M2 ON DAY 1)
     Route: 065
  2. GEMCITABINE [Suspect]
     Active Substance: GEMCITABINE
     Indication: Renal cell carcinoma
     Dosage: 1000 MILLIGRAM/SQ. METER (THE PATIENT RECEIVED GEMCITABINE 1000MG/M2 ON DAYS 1, 8 AND 15)
     Route: 065
  3. PACLITAXEL [Suspect]
     Active Substance: PACLITAXEL
     Indication: Renal cell carcinoma
     Dosage: 80 MILLIGRAM/SQ. METER (THE PATIENT RECEIVED PACLITAXEL 80MG/M2 ON DAYS 1, 8 AND 15)
     Route: 065
  4. LEVOTHYROXINE [Concomitant]
     Active Substance: LEVOTHYROXINE
     Indication: Hypothyroidism
     Dosage: UNK
     Route: 065

REACTIONS (6)
  - Clostridium difficile infection [Unknown]
  - Thrombocytopenia [Unknown]
  - Hypokalaemia [Unknown]
  - Hypomagnesaemia [Unknown]
  - Dehydration [Unknown]
  - Hyponatraemia [Unknown]
